FAERS Safety Report 5576892-X (Version None)
Quarter: 2007Q4

REPORT INFORMATION
  Report Type: 
  Country: None (occurrence: None)
  Receive Date: 20071228
  Receipt Date: 20071218
  Transmission Date: 20080405
  Serious: Yes (Other)
  Sender: FDA-Public Use
  Company Number: JP-RANBAXY-2007RR-12186

PATIENT

DRUGS (5)
  1. RISPERIDONE 3MG FILM-COATED TABLETS [Suspect]
     Dosage: 3 MG, QD
  2. RISPERIDONE 3MG FILM-COATED TABLETS [Suspect]
     Dosage: 4 MG, QD
  3. RISPERIDONE 3MG FILM-COATED TABLETS [Suspect]
     Dosage: 2 MG, QD
  4. RISPERIDONE 3MG FILM-COATED TABLETS [Suspect]
     Dosage: 1 MG, QD
  5. FLUVOXAMINE MALEATE [Suspect]
     Dosage: 50 MG, QD

REACTIONS (2)
  - DRUG INTERACTION [None]
  - MEIGE'S SYNDROME [None]
